FAERS Safety Report 17145835 (Version 1)
Quarter: 2019Q4

REPORT INFORMATION
  Report Type: Spontaneous
  Country: US (occurrence: US)
  Receive Date: 20191120
  Receipt Date: 20191120
  Transmission Date: 20200122
  Serious: Yes (Other)
  Sender: FDA-Public Use
  Company Number: None

PATIENT
  Age: 75 Year
  Sex: Female
  Weight: 54.43 kg

DRUGS (4)
  1. T4 [Concomitant]
     Active Substance: LEVOTHYROXINE
  2. PROBIOTIC CAPSULES [Concomitant]
     Active Substance: PROBIOTICS NOS
  3. VARITHENA [Suspect]
     Active Substance: POLIDOCANOL
     Indication: VARICOSE VEIN
     Dates: start: 20190816, end: 20191115
  4. T3 [Concomitant]
     Active Substance: LIOTHYRONINE SODIUM

REACTIONS (7)
  - Pain of skin [None]
  - Thrombosis [None]
  - Burning sensation [None]
  - Inflammation [None]
  - Injection site swelling [None]
  - Skin exfoliation [None]
  - Pain [None]

NARRATIVE: CASE EVENT DATE: 20190816
